FAERS Safety Report 6230571-4 (Version None)
Quarter: 2009Q2

REPORT INFORMATION
  Report Type: 
  Country: None (occurrence: None)
  Receive Date: 20090615
  Receipt Date: 20090420
  Transmission Date: 20091009
  Serious: No
  Sender: FDA-Public Use
  Company Number: US-ABBOTT-09P-163-0569615-00

PATIENT
  Age: 56 Year
  Sex: Male

DRUGS (3)
  1. TRILIPIX [Suspect]
     Indication: DYSLIPIDAEMIA
     Dates: end: 20090401
  2. TRILIPIX [Suspect]
     Indication: HIGH DENSITY LIPOPROTEIN DECREASED
  3. TRILIPIX [Suspect]
     Indication: BLOOD TRIGLYCERIDES INCREASED

REACTIONS (3)
  - ANORECTAL DISCOMFORT [None]
  - JOINT STIFFNESS [None]
  - MYALGIA [None]
